FAERS Safety Report 12294916 (Version 1)
Quarter: 2016Q2

REPORT INFORMATION
  Report Type: Spontaneous
  Country: None (occurrence: None)
  Receive Date: 20160421
  Receipt Date: 20160421
  Transmission Date: 20160815
  Serious: No
  Sender: FDA-Public Use
  Company Number: None

PATIENT
  Age: 82 Year
  Sex: Female

DRUGS (5)
  1. IBRANCE [Suspect]
     Active Substance: PALBOCICLIB
  2. SIMVASTATIN. [Concomitant]
     Active Substance: SIMVASTATIN
  3. LETROZOLE. [Concomitant]
     Active Substance: LETROZOLE
  4. KRILL OIL [Concomitant]
     Active Substance: DIETARY SUPPLEMENT
  5. LISINOPRIL. [Concomitant]
     Active Substance: LISINOPRIL

REACTIONS (2)
  - Alopecia [None]
  - Constipation [None]

NARRATIVE: CASE EVENT DATE: 20160419
